FAERS Safety Report 5303845-9 (Version None)
Quarter: 2007Q1

REPORT INFORMATION
  Report Type: 
  Country: None (occurrence: None)
  Receive Date: 20070201
  Receipt Date: 20061119
  Transmission Date: 20070707
  Serious: No
  Sender: FDA-Public Use
  Company Number: 2006PV025546

PATIENT
  Age: 64 Year
  Sex: Male
  Weight: 87.5442 kg

DRUGS (3)
  1. BYETTA [Suspect]
     Indication: DIABETES MELLITUS NON-INSULIN-DEPENDENT
     Dosage: 5 MCG;BID;SC
     Route: 058
     Dates: start: 20061116
  2. GLUCOPHAGE [Concomitant]
  3. PRANDIN [Concomitant]

REACTIONS (7)
  - ANXIETY [None]
  - BLOOD GLUCOSE DECREASED [None]
  - BLOOD GLUCOSE FLUCTUATION [None]
  - CONSTIPATION [None]
  - FAECES DISCOLOURED [None]
  - FOOD CRAVING [None]
  - INJECTION SITE BRUISING [None]
